FAERS Safety Report 23528568 (Version 1)
Quarter: 2024Q1

REPORT INFORMATION
  Report Type: Spontaneous
  Country: RU (occurrence: RU)
  Receive Date: 20240215
  Receipt Date: 20240215
  Transmission Date: 20240410
  Serious: Yes (Other)
  Sender: FDA-Public Use
  Company Number: RU-LUNDBECK-DKLU3074101

PATIENT
  Age: 85 Year
  Sex: Female

DRUGS (10)
  1. BRINTELLIX [Suspect]
     Active Substance: VORTIOXETINE HYDROBROMIDE
     Indication: Product used for unknown indication
     Dosage: UNK
     Route: 065
  2. THIOCTATE TROMETAMOL [Suspect]
     Active Substance: THIOCTATE TROMETAMOL
     Indication: Neuropathy peripheral
     Dosage: UNK
     Route: 042
  3. TRAZODONE HYDROCHLORIDE [Suspect]
     Active Substance: TRAZODONE HYDROCHLORIDE
     Indication: Product used for unknown indication
     Dosage: UNK
     Route: 065
  4. EMOXYPINE SUCCINATE [Suspect]
     Active Substance: EMOXYPINE SUCCINATE
     Indication: Product used for unknown indication
     Dosage: UNK
     Route: 065
  5. EMOXYPINE SUCCINATE [Suspect]
     Active Substance: EMOXYPINE SUCCINATE
     Indication: Product used for unknown indication
     Dosage: UNK
     Route: 065
  6. ALPHA LIPOIC ACID [Suspect]
     Active Substance: .ALPHA.-LIPOIC ACID
     Indication: Neuropathy peripheral
     Dosage: UNK
     Route: 065
     Dates: end: 20240113
  7. LOSARTAN [Concomitant]
     Active Substance: LOSARTAN
     Indication: Product used for unknown indication
     Dosage: 50 MILLIGRAM
     Route: 065
  8. LOSARTAN [Concomitant]
     Active Substance: LOSARTAN
     Dosage: 100 MILLIGRAM
     Route: 065
     Dates: start: 20240121
  9. AMLODIPINE [Concomitant]
     Active Substance: AMLODIPINE BESYLATE
     Indication: Product used for unknown indication
     Dosage: 5 MILLIGRAM
     Route: 065
  10. ALLOPURINOL [Concomitant]
     Active Substance: ALLOPURINOL
     Indication: Product used for unknown indication
     Dosage: UNK
     Route: 065

REACTIONS (4)
  - Hypertensive crisis [Recovered/Resolved]
  - Taste disorder [Not Recovered/Not Resolved]
  - Nightmare [Not Recovered/Not Resolved]
  - Treatment noncompliance [Unknown]

NARRATIVE: CASE EVENT DATE: 20240120
